FAERS Safety Report 10007356 (Version 1)
Quarter: 2014Q1

REPORT INFORMATION
  Report Type: Spontaneous
  Country: CA (occurrence: CA)
  Receive Date: 20140313
  Receipt Date: 20140313
  Transmission Date: 20141002
  Serious: Yes (Other)
  Sender: FDA-Public Use
  Company Number: CA-GLAXOSMITHKLINE-A1064627A

PATIENT
  Age: 48 Year
  Sex: Female

DRUGS (8)
  1. ADVAIR [Suspect]
     Indication: PRODUCT USED FOR UNKNOWN INDICATION
     Route: 065
  2. ADVAIR [Concomitant]
  3. ATROVENT [Concomitant]
  4. BIAXIN [Concomitant]
  5. CEFUROXIME [Concomitant]
  6. PERCOCET [Concomitant]
  7. SYNTHROID [Concomitant]
  8. VENTOLIN [Concomitant]

REACTIONS (3)
  - Pneumonia [Unknown]
  - Muscle spasms [Unknown]
  - Presyncope [Unknown]
